FAERS Safety Report 8387243-X (Version None)
Quarter: 2012Q2

REPORT INFORMATION
  Report Type: 
  Country: None (occurrence: None)
  Receive Date: 20120525
  Receipt Date: 20120515
  Transmission Date: 20120825
  Serious: Yes (Hospitalization)
  Sender: FDA-Public Use
  Company Number: US-ABBOTT-12P-163-0936182-00

PATIENT
  Sex: Male
  Weight: 89.438 kg

DRUGS (1)
  1. BIAXIN [Suspect]
     Indication: PNEUMONIA
     Dates: start: 20120503

REACTIONS (6)
  - BLOOD GLUCOSE DECREASED [None]
  - MOBILITY DECREASED [None]
  - AGITATION [None]
  - MEMORY IMPAIRMENT [None]
  - DYSKINESIA [None]
  - ANXIETY [None]
